FAERS Safety Report 7989000-2 (Version None)
Quarter: 2011Q4

REPORT INFORMATION
  Report Type: 
  Country: None (occurrence: None)
  Receive Date: 20111219
  Receipt Date: 20111216
  Transmission Date: 20120403
  Serious: Yes (Death)
  Sender: FDA-Public Use
  Company Number: PHEH2011US011891

PATIENT
  Sex: Male

DRUGS (1)
  1. EXJADE [Suspect]
     Indication: NEOPLASM
     Dosage: 2125 MG, DAILY
     Route: 048
     Dates: start: 20070601, end: 20111201

REACTIONS (1)
  - DEATH [None]
